FAERS Safety Report 25985663 (Version 1)
Quarter: 2025Q4

REPORT INFORMATION
  Report Type: Spontaneous
  Country: JP (occurrence: JP)
  Receive Date: 20251031
  Receipt Date: 20251031
  Transmission Date: 20260118
  Serious: Yes (Death, Other)
  Sender: PHARMACEUTICAL ASSOC
  Company Number: JP-PAIPHARMA-2025-JP-000146

PATIENT
  Age: 70 Year
  Sex: Male
  Weight: 51.5 kg

DRUGS (1)
  1. PREDNISOLONE SODIUM PHOSPHATE [Suspect]
     Active Substance: PREDNISOLONE SODIUM PHOSPHATE
     Indication: Oesophageal stenosis
     Dosage: 30 MG DAILY

REACTIONS (2)
  - Ascites [Fatal]
  - Mesenteric vein thrombosis [Fatal]
